FAERS Safety Report 7705246-2 (Version None)
Quarter: 2011Q3

REPORT INFORMATION
  Report Type: 
  Country: None (occurrence: None)
  Receive Date: 20110818
  Receipt Date: 20110802
  Transmission Date: 20111222
  Serious: Yes (Other)
  Sender: FDA-Public Use
  Company Number: 2011MA010844

PATIENT
  Age: 26 Year
  Sex: Female

DRUGS (1)
  1. CLOTRIMAZOLE AND BETAMETHASONE DIPROPIONATE [Suspect]
     Indication: URTICARIA
     Dosage: TOP
     Route: 061

REACTIONS (7)
  - ADRENAL INSUFFICIENCY [None]
  - BLOOD UREA INCREASED [None]
  - ASPARTATE AMINOTRANSFERASE INCREASED [None]
  - CUSHING'S SYNDROME [None]
  - ALANINE AMINOTRANSFERASE INCREASED [None]
  - WHITE BLOOD CELL COUNT INCREASED [None]
  - IATROGENIC INJURY [None]
